FAERS Safety Report 7609667-8 (Version None)
Quarter: 2011Q3

REPORT INFORMATION
  Report Type: 
  Country: None (occurrence: None)
  Receive Date: 20110714
  Receipt Date: 20110708
  Transmission Date: 20111222
  Serious: Yes (Hospitalization, Disabling, Other)
  Sender: FDA-Public Use
  Company Number: US-ABBOTT-11P-163-0837989-00

PATIENT
  Sex: Female
  Weight: 48.124 kg

DRUGS (6)
  1. UKNOWN ETUDE STUDY DRUG [Concomitant]
     Indication: PRODUCT USED FOR UNKNOWN INDICATION
  2. HUMIRA [Suspect]
     Indication: PSORIASIS
     Route: 058
     Dates: start: 20090401, end: 20110509
  3. UNKNOWN HYPOGLYCEMIC [Concomitant]
     Indication: DIABETES MELLITUS
     Route: 048
  4. UNKNOWN STATIN [Concomitant]
     Indication: BLOOD CHOLESTEROL INCREASED
     Route: 048
  5. HUMIRA [Suspect]
     Route: 058
     Dates: start: 20110628
  6. UNKNOWN BLOOD PRESSURE MEDICATION [Concomitant]
     Indication: HYPERTENSION
     Route: 048

REACTIONS (6)
  - CEREBROVASCULAR ACCIDENT [None]
  - SKIN FISSURES [None]
  - PSORIASIS [None]
  - SKIN HAEMORRHAGE [None]
  - VISUAL FIELD DEFECT [None]
  - IMPAIRED DRIVING ABILITY [None]
